FAERS Safety Report 14553023 (Version 1)
Quarter: 2018Q1

REPORT INFORMATION
  Report Type: Spontaneous
  Country: US (occurrence: US)
  Receive Date: 20180220
  Receipt Date: 20180220
  Transmission Date: 20180509
  Serious: Yes (Hospitalization)
  Sender: FDA-Public Use
  Company Number: PHHY2018US021350

PATIENT
  Age: 68 Year
  Sex: Male
  Weight: 90 kg

DRUGS (1)
  1. NAFCILLIN [Suspect]
     Active Substance: NAFCILLIN\NAFCILLIN SODIUM
     Indication: OSTEOMYELITIS
     Dosage: 2 G, Q4H
     Route: 042

REACTIONS (7)
  - Hepatitis cholestatic [Unknown]
  - Yellow skin [Unknown]
  - Weight decreased [Unknown]
  - Chromaturia [Unknown]
  - Jaundice [Recovered/Resolved]
  - Drug-induced liver injury [Unknown]
  - Faeces discoloured [Unknown]
